FAERS Safety Report 24265918 (Version 1)
Quarter: 2024Q3

REPORT INFORMATION
  Report Type: Spontaneous
  Country: US (occurrence: US)
  Receive Date: 20240830
  Receipt Date: 20240830
  Transmission Date: 20241017
  Serious: Yes (Other)
  Sender: NOVO NORDISK
  Company Number: US-NOVOPROD-1273744

PATIENT
  Age: 63 Year
  Sex: Male

DRUGS (1)
  1. INSULIN ASPART [Suspect]
     Active Substance: INSULIN ASPART
     Indication: Type 2 diabetes mellitus
     Dosage: 10 UNITS WHEN THEY EAT
     Route: 058
     Dates: start: 2019

REACTIONS (5)
  - Cerebrovascular accident [Unknown]
  - Diabetes mellitus inadequate control [Unknown]
  - Eye pain [Not Recovered/Not Resolved]
  - Malaise [Not Recovered/Not Resolved]
  - Thyroid disorder [Unknown]
